FAERS Safety Report 16110978 (Version 1)
Quarter: 2019Q1

REPORT INFORMATION
  Report Type: Report from Study
  Country: NL (occurrence: NL)
  Receive Date: 20190325
  Receipt Date: 20190325
  Transmission Date: 20190418
  Serious: Yes (Death)
  Sender: FDA-Public Use
  Company Number: NL-ROCHE-2288529

PATIENT
  Age: 71 Year
  Sex: Male

DRUGS (6)
  1. TRASTUZUMAB. [Suspect]
     Active Substance: TRASTUZUMAB
     Indication: HEPATOCELLULAR CARCINOMA
     Dosage: ON 5/MAR/2019, MOST RECENT DOSE (430.5 MG) OF TRASTUZUMAB WAS ADMINISTERED.
     Route: 042
     Dates: start: 20190122
  2. FUROSEMIDE. [Concomitant]
     Active Substance: FUROSEMIDE
     Dosage: DAILY DOSE: UNKNOWN
     Route: 065
     Dates: start: 20190312
  3. METOCLOPRAMIDE. [Concomitant]
     Active Substance: METOCLOPRAMIDE
     Route: 065
     Dates: start: 20190204
  4. PERTUZUMAB. [Suspect]
     Active Substance: PERTUZUMAB
     Indication: HEPATOCELLULAR CARCINOMA
     Dosage: ON 5/MAR/2019, MOST RECENT DOSE (420 MG) OF PERTUZUMAB WAS ADMINISTERED.
     Route: 042
     Dates: start: 20190122
  5. NADROPARINE [Concomitant]
     Active Substance: NADROPARIN
     Route: 065
     Dates: start: 20190319
  6. SPIRONOLACTON [Concomitant]
     Active Substance: SPIRONOLACTONE
     Dosage: DAILY DOSE: UNKNOWN
     Route: 065
     Dates: start: 20190312

REACTIONS (1)
  - Pulmonary embolism [Fatal]

NARRATIVE: CASE EVENT DATE: 20190320
